FAERS Safety Report 5868205-0 (Version None)
Quarter: 2008Q3

REPORT INFORMATION
  Report Type: 
  Country: None (occurrence: None)
  Receive Date: 20080902
  Receipt Date: 20080821
  Transmission Date: 20090109
  Serious: Yes (Other)
  Sender: FDA-Public Use
  Company Number: AU-PFIZER INC-2008063099

PATIENT
  Sex: Male

DRUGS (5)
  1. SUTENT [Suspect]
     Indication: RENAL CELL CARCINOMA
     Dosage: FREQ:DAILY
     Route: 048
  2. COVERSYL [Concomitant]
     Route: 048
  3. TAMSULOSIN HCL [Concomitant]
     Route: 048
  4. RABEPRAZOLE SODIUM [Concomitant]
     Route: 048
  5. EZETROL [Concomitant]
     Route: 048

REACTIONS (2)
  - FACE OEDEMA [None]
  - SWELLING FACE [None]
